FAERS Safety Report 4386028-9 (Version None)
Quarter: 2004Q2

REPORT INFORMATION
  Report Type: 
  Country: None (occurrence: None)
  Receive Date: 20040628
  Receipt Date: 20000323
  Transmission Date: 20050107
  Serious: Yes (Life-Threatening)
  Sender: FDA-Public Use
  Company Number: JP-MERCK-00040103

PATIENT
  Age: 17 Day
  Sex: Female
  Weight: 1 kg

DRUGS (4)
  1. AMPICILLIN [Concomitant]
     Route: 065
     Dates: start: 20000229, end: 20000302
  2. BERACTANT [Concomitant]
     Route: 041
     Dates: start: 20000228, end: 20000228
  3. GENTAMICIN SULFATE [Concomitant]
     Route: 065
     Dates: start: 20000229, end: 20000302
  4. INDOCIN I.V. [Suspect]
     Indication: PATENT DUCTUS ARTERIOSUS
     Route: 042
     Dates: start: 20000307, end: 20000307

REACTIONS (2)
  - HAEMOLYTIC ANAEMIA [None]
  - HYPONATRAEMIA [None]
